FAERS Safety Report 26075536 (Version 1)
Quarter: 2025Q4

REPORT INFORMATION
  Report Type: Spontaneous
  Country: JP (occurrence: JP)
  Receive Date: 20251121
  Receipt Date: 20251121
  Transmission Date: 20260117
  Serious: Yes (Other)
  Sender: BAYER HEALTHCARE PHARMACEUTICALS INC.
  Company Number: JP-BAYER-2025A152238

PATIENT
  Age: 80 Year
  Sex: Female
  Weight: 41.8 kg

DRUGS (30)
  1. ADEMPAS [Suspect]
     Active Substance: RIOCIGUAT
     Indication: Pulmonary hypertension
     Dosage: 2 MG, TID
     Route: 048
  2. ADEMPAS [Suspect]
     Active Substance: RIOCIGUAT
     Indication: Pulmonary hypertension
     Dosage: DAILY DOSE 7.5 MG
  3. ADEMPAS [Suspect]
     Active Substance: RIOCIGUAT
     Indication: Pulmonary hypertension
     Dosage: DAILY DOSE 6 MG
  4. ASPIRIN [Suspect]
     Active Substance: ASPIRIN
     Dosage: 100 MG, QD
  5. ADALAT CC [Suspect]
     Active Substance: NIFEDIPINE
     Dosage: DAILY DOSE 10 MG
  6. SELEXIPAG [Concomitant]
     Active Substance: SELEXIPAG
     Dosage: DAILY DOSE .4 MG
  7. SELEXIPAG [Concomitant]
     Active Substance: SELEXIPAG
     Dosage: DAILY DOSE .8 MG
  8. SELEXIPAG [Concomitant]
     Active Substance: SELEXIPAG
     Dosage: DAILY DOSE 1.2 MG
  9. SELEXIPAG [Concomitant]
     Active Substance: SELEXIPAG
     Dosage: DAILY DOSE 1.6 MG
  10. SELEXIPAG [Concomitant]
     Active Substance: SELEXIPAG
     Dosage: DAILY DOSE 1.2 MG
  11. MACITENTAN [Concomitant]
     Active Substance: MACITENTAN
     Dosage: DAILY DOSE 10 MG
  12. FUROSEMIDE [Concomitant]
     Active Substance: FUROSEMIDE
     Dosage: 20 MG, QD
  13. FUROSEMIDE [Concomitant]
     Active Substance: FUROSEMIDE
     Dosage: DAILY DOSE 40 MG
  14. OLMESARTAN [Concomitant]
     Active Substance: OLMESARTAN
     Dosage: DAILY DOSE 10 MG
  15. EPLERENONE [Concomitant]
     Active Substance: EPLERENONE
     Dosage: DAILY DOSE 25 MG
  16. EMPAGLIFLOZIN [Concomitant]
     Active Substance: EMPAGLIFLOZIN
     Dosage: DAILY DOSE 10 MG
  17. TOLVAPTAN [Concomitant]
     Active Substance: TOLVAPTAN
     Dosage: 15 MG, QD
  18. TOLVAPTAN [Concomitant]
     Active Substance: TOLVAPTAN
     Dosage: DAILY DOSE 7.5 MG
  19. TOLVAPTAN [Concomitant]
     Active Substance: TOLVAPTAN
     Dosage: DAILY DOSE 15 MG
  20. AZOSEMIDE [Concomitant]
     Active Substance: AZOSEMIDE
     Dosage: DAILY DOSE 60 MG
  21. AZOSEMIDE [Concomitant]
     Active Substance: AZOSEMIDE
     Dosage: DAILY DOSE 30 MG
  22. OXYGEN [Concomitant]
     Active Substance: OXYGEN
     Dosage: 1.0 L/MIN
  23. OXYGEN [Concomitant]
     Active Substance: OXYGEN
     Dosage: 4.0 L/MIN
  24. WARFARIN [Concomitant]
     Active Substance: WARFARIN
     Dosage: 1.75 MG, QD
  25. SPIRONOLACTONE [Concomitant]
     Active Substance: SPIRONOLACTONE
     Dosage: 50 MG, QD
  26. FEBUXOSTAT [Concomitant]
     Active Substance: FEBUXOSTAT
     Dosage: 10 MG, QD
  27. ESOMEPRAZOLE [Concomitant]
     Active Substance: ESOMEPRAZOLE
     Dosage: 20 MG, QD
  28. TOCOPHEROL ACETATE [Concomitant]
     Active Substance: .ALPHA.-TOCOPHEROL ACETATE
     Dosage: 100 MG, TID
  29. TACROLIMUS [Concomitant]
     Active Substance: TACROLIMUS
     Dosage: 1 MG, QD
  30. MYCOPHENOLATE MOFETIL [Concomitant]
     Active Substance: MYCOPHENOLATE MOFETIL
     Dosage: 250 MG, BID

REACTIONS (5)
  - Cardiac failure [None]
  - Cardiac failure [None]
  - Cardiac failure [None]
  - Hypoxia [None]
  - Therapy non-responder [Unknown]
